FAERS Safety Report 12835397 (Version 1)
Quarter: 2016Q4

REPORT INFORMATION
  Report Type: Report from Study
  Country: US (occurrence: US)
  Receive Date: 20161011
  Receipt Date: 20161011
  Transmission Date: 20170207
  Serious: Yes (Hospitalization, Other)
  Sender: FDA-Public Use
  Company Number: US-AMGEN-USASL2016138964

PATIENT
  Sex: Female

DRUGS (1)
  1. KYPROLIS [Suspect]
     Active Substance: CARFILZOMIB
     Indication: PLASMA CELL MYELOMA
     Dosage: 35 MG, PER TWENTY EIGHT DAYS
     Route: 065

REACTIONS (4)
  - Asthma [Unknown]
  - Pain [Unknown]
  - Unevaluable event [Unknown]
  - Plasma cell myeloma [Unknown]
